FAERS Safety Report 7402059-6 (Version None)
Quarter: 2011Q2

REPORT INFORMATION
  Report Type: 
  Country: None (occurrence: None)
  Receive Date: 20110408
  Receipt Date: 20081001
  Transmission Date: 20111010
  Serious: Yes (Death, Other)
  Sender: FDA-Public Use
  Company Number: US-BAYER-2010-002054

PATIENT
  Age: 64 Year
  Sex: Female

DRUGS (6)
  1. CAPTOPRIL [Concomitant]
     Indication: HYPERTENSION
     Dosage: UNK
     Dates: start: 19780101, end: 20030101
  2. LASIX [Concomitant]
     Dosage: UNK
     Dates: start: 20031001
  3. TRASYLOL [Suspect]
     Indication: CORONARY ARTERY BYPASS
     Dosage: UNK
     Route: 042
     Dates: start: 20031101
  4. AMICAR [Concomitant]
     Dosage: UNK
     Dates: start: 20031121
  5. GLUCOTROL [Concomitant]
     Dosage: UNK
     Dates: start: 19780101
  6. ZOCOR [Concomitant]
     Dosage: UNK

REACTIONS (7)
  - RENAL FAILURE [None]
  - DEATH [None]
  - PAIN [None]
  - INJURY [None]
  - ANXIETY [None]
  - STRESS [None]
  - EMOTIONAL DISTRESS [None]
